FAERS Safety Report 10958130 (Version 1)
Quarter: 2015Q1

REPORT INFORMATION
  Report Type: Spontaneous
  Country: JP (occurrence: JP)
  Receive Date: 20150326
  Receipt Date: 20150326
  Transmission Date: 20150721
  Serious: Yes (Death)
  Sender: FDA-Public Use
  Company Number: JP-ACTELION-A-CH2015-115126

PATIENT
  Sex: Female

DRUGS (3)
  1. VELETRI [Suspect]
     Active Substance: EPOPROSTENOL
     Indication: PULMONARY HYPERTENSION
     Dosage: 10 NG/KG, PER MIN
     Route: 042
     Dates: start: 20150217, end: 20150313
  2. OXYGEN. [Concomitant]
     Active Substance: OXYGEN
  3. NITRIC OXIDE. [Concomitant]
     Active Substance: NITRIC OXIDE
     Route: 055

REACTIONS (1)
  - Right ventricular failure [Fatal]
